FAERS Safety Report 10267891 (Version 2)
Quarter: 2014Q3

REPORT INFORMATION
  Report Type: Spontaneous
  Country: US (occurrence: US)
  Receive Date: 20140630
  Receipt Date: 20140813
  Transmission Date: 20150326
  Serious: Yes (Other)
  Sender: FDA-Public Use
  Company Number: US-SA-2014SA082482

PATIENT
  Age: 54 Year
  Sex: Female
  Weight: 62.14 kg

DRUGS (26)
  1. LANTUS SOLOSTAR [Suspect]
     Active Substance: INSULIN GLARGINE
     Indication: TYPE 1 DIABETES MELLITUS
     Dosage: DOSE:20 UNIT(S)
     Route: 058
  2. LANTUS SOLOSTAR [Suspect]
     Active Substance: INSULIN GLARGINE
     Indication: TYPE 1 DIABETES MELLITUS
     Dosage: DOSE:20 UNIT(S)
     Route: 058
     Dates: start: 20140114
  3. ALL OTHER THERAPEUTIC PRODUCTS [Concomitant]
     Active Substance: UNSPECIFIED INGREDIENT
     Dosage: STRENGTH: 5 MG; DOSE:3
     Dates: start: 20060101
  4. ESTRADIOL. [Concomitant]
     Active Substance: ESTRADIOL
     Dosage: FORM: PATCH; STERNGTH: 0.025 MG; DOSE:1
     Dates: start: 20070412
  5. CYCLOBENZAPRINE [Concomitant]
     Active Substance: CYCLOBENZAPRINE
     Dosage: STRENGTH: 5 MG
     Dates: start: 20130129
  6. OMEPRAZOLE. [Concomitant]
     Active Substance: OMEPRAZOLE
     Dosage: STRENGTH: 20 MG, DOSE:1
     Dates: start: 20100722
  7. GABAPENTIN. [Concomitant]
     Active Substance: GABAPENTIN
     Dosage: STRENGTH: 100 MG,
     Dates: start: 20121127
  8. TRAZODONE HYDROCHLORIDE. [Concomitant]
     Active Substance: TRAZODONE HYDROCHLORIDE
     Dosage: STRENGTH: 150 MG
     Dates: start: 20131204
  9. VERAPAMIL [Concomitant]
     Active Substance: VERAPAMIL HYDROCHLORIDE
     Dosage: STRENGTGH:80 MG
     Dates: start: 20140306
  10. SOLOSTAR [Concomitant]
     Active Substance: DEVICE
     Indication: TYPE 1 DIABETES MELLITUS
     Dates: start: 20140114
  11. GENERAL NUTRIENTS [Concomitant]
     Dosage: STRENGTH: 475 MG
     Dates: start: 20130129
  12. DEVICE NOS [Concomitant]
     Active Substance: DEVICE
     Dosage: NANO INJ USE 5 TIMES DAILY
     Dates: start: 20140114
  13. LANTUS SOLOSTAR [Suspect]
     Active Substance: INSULIN GLARGINE
     Indication: TYPE 1 DIABETES MELLITUS
     Dosage: DOSE:20 UNIT(S)
     Route: 058
     Dates: start: 20140419
  14. CYMBALTA [Concomitant]
     Active Substance: DULOXETINE HYDROCHLORIDE
     Dosage: STRENGTH: 60 MG
     Dates: start: 20060101
  15. FLONASE [Concomitant]
     Active Substance: FLUTICASONE PROPIONATE
     Dosage: 0.05% SPR 16G SPRAY 2 SPRAYS /DAY
     Dates: start: 20130331
  16. LISINOPRIL. [Concomitant]
     Active Substance: LISINOPRIL
     Dosage: STRENGTH: 2.5 MG
     Dates: start: 20140123
  17. SOLOSTAR [Concomitant]
     Active Substance: DEVICE
     Indication: TYPE 1 DIABETES MELLITUS
     Dates: start: 20140419
  18. GLUCAGON. [Concomitant]
     Active Substance: GLUCAGON
     Indication: HYPOGLYCAEMIA
     Dosage: STRENGTH: 1 MG
     Dates: start: 20130626
  19. TRAZODONE HYDROCHLORIDE. [Concomitant]
     Active Substance: TRAZODONE HYDROCHLORIDE
     Dosage: STRENGTH: 150 MG^ FREQUENCY: Q HS
     Dates: start: 20131024
  20. NOVOLOG [Concomitant]
     Active Substance: INSULIN ASPART
  21. SOLOSTAR [Concomitant]
     Active Substance: DEVICE
     Indication: TYPE 1 DIABETES MELLITUS
  22. ABILIFY [Concomitant]
     Active Substance: ARIPIPRAZOLE
     Dosage: STRENGTH: 15 MG
     Dates: start: 20070412
  23. CYCLOBENZAPRINE [Concomitant]
     Active Substance: CYCLOBENZAPRINE
     Dosage: STRENGTH: 10 MG
     Dates: start: 20130129
  24. ALL OTHER THERAPEUTIC PRODUCTS [Concomitant]
     Active Substance: UNSPECIFIED INGREDIENT
     Dosage: ONE TOUCH ULTRA LINK TEST 4-7X/DAY
     Dates: start: 20130129
  25. VERAPAMIL [Concomitant]
     Active Substance: VERAPAMIL HYDROCHLORIDE
     Dosage: STRENGTH: 80 MG
     Dates: start: 20131230
  26. NOVOLOG [Concomitant]
     Active Substance: INSULIN ASPART
     Dosage: 100 UNITS/ ML, FREQUENCY: 4 TIMES DAILY IN MORNING, NOON, 4 O^CLOCK AND AT BEDTIME DOSE:10 UNIT(S)
     Dates: start: 20131001

REACTIONS (4)
  - Unresponsive to stimuli [Recovered/Resolved]
  - Narcolepsy [Not Recovered/Not Resolved]
  - Drug administration error [Unknown]
  - Paranoia [Not Recovered/Not Resolved]
